FAERS Safety Report 6236551-7 (Version None)
Quarter: 2009Q2

REPORT INFORMATION
  Report Type: 
  Country: None (occurrence: None)
  Receive Date: 20090619
  Receipt Date: 20090610
  Transmission Date: 20091009
  Serious: Yes (Other)
  Sender: FDA-Public Use
  Company Number: B0579328A

PATIENT
  Age: 8 Year
  Sex: Male
  Weight: 38 kg

DRUGS (4)
  1. BECLOMETHASONE DIPROPIONATE [Suspect]
     Indication: ASTHMA
     Dosage: 400MCG PER DAY
     Route: 055
  2. MONTELUKAST [Concomitant]
     Route: 048
  3. ALBUTEROL [Concomitant]
     Route: 055
  4. CETIRIZINE [Concomitant]
     Dosage: 5MG PER DAY

REACTIONS (2)
  - INCREASED APPETITE [None]
  - WEIGHT INCREASED [None]
